FAERS Safety Report 24583718 (Version 3)
Quarter: 2025Q1

REPORT INFORMATION
  Report Type: Report from Study
  Country: MX (occurrence: MX)
  Receive Date: 20241106
  Receipt Date: 20250111
  Transmission Date: 20250409
  Serious: Yes (Disabling)
  Sender: UNITED THERAPEUTICS
  Company Number: MX-UNITED THERAPEUTICS-UNT-2024-035130

PATIENT
  Age: 67 Year
  Weight: 65 kg

DRUGS (3)
  1. TREPROSTINIL SODIUM [Suspect]
     Active Substance: TREPROSTINIL SODIUM
     Indication: Pulmonary arterial hypertension
  2. TREPROSTINIL SODIUM [Suspect]
     Active Substance: TREPROSTINIL SODIUM
  3. TREPROSTINIL SODIUM [Suspect]
     Active Substance: TREPROSTINIL SODIUM

REACTIONS (16)
  - Disorientation [Not Recovered/Not Resolved]
  - Peripheral swelling [Unknown]
  - Balance disorder [Unknown]
  - Catheter site swelling [Not Recovered/Not Resolved]
  - Generalised oedema [Recovering/Resolving]
  - Feeling abnormal [Recovering/Resolving]
  - Somnolence [Recovering/Resolving]
  - Fatigue [Unknown]
  - Headache [Recovering/Resolving]
  - Feeling hot [Not Recovered/Not Resolved]
  - Inflammation [Recovering/Resolving]
  - Dizziness [Not Recovered/Not Resolved]
  - Agitation [Unknown]
  - Abdominal discomfort [Unknown]
  - Chest discomfort [Unknown]
  - Palpitations [Unknown]
